FAERS Safety Report 4835824-X (Version None)
Quarter: 2005Q4

REPORT INFORMATION
  Report Type: 
  Country: None (occurrence: None)
  Receive Date: 20051123
  Receipt Date: 20051115
  Transmission Date: 20060501
  Serious: Yes (Disabling)
  Sender: FDA-Public Use
  Company Number: 2005AC01826

PATIENT
  Age: 44 Year
  Sex: Female

DRUGS (3)
  1. ARIMIDEX [Suspect]
     Route: 048
     Dates: start: 20030101
  2. PANTAZOL [Concomitant]
     Route: 048
  3. DAFALGAN [Concomitant]
     Route: 048

REACTIONS (2)
  - CHRONIC FATIGUE SYNDROME [None]
  - FIBROMYALGIA [None]
